FAERS Safety Report 4823347-3 (Version None)
Quarter: 2005Q4

REPORT INFORMATION
  Report Type: 
  Country: None (occurrence: None)
  Receive Date: 20051107
  Receipt Date: 20051028
  Transmission Date: 20060501
  Serious: Yes (Other)
  Sender: FDA-Public Use
  Company Number: 2005-10-0538

PATIENT
  Age: 48 Year
  Sex: Male
  Weight: 96.6162 kg

DRUGS (14)
  1. PEG-INTRON [Suspect]
     Indication: HEPATITIS C
     Dosage: 120-150MCG*QWK
     Dates: start: 20040321, end: 20040406
  2. PEG-INTRON [Suspect]
     Indication: HEPATITIS C
     Dosage: 120-150MCG*QWK
     Dates: start: 20040406, end: 20040831
  3. PEG-INTRON [Suspect]
     Indication: HEPATITIS C
     Dosage: 120-150MCG*QWK
     Dates: start: 20040831, end: 20050119
  4. PEG-INTRON [Suspect]
     Indication: HEPATITIS C
     Dosage: 120-150MCG*QWK
     Dates: start: 20050119, end: 20050413
  5. PEG-INTRON [Suspect]
     Indication: HEPATITIS C
     Dosage: 120-150MCG*QWK
     Dates: start: 20050413, end: 20050420
  6. PEG-INTRON [Suspect]
     Indication: HEPATITIS C
     Dosage: 120-150MCG*QWK
     Dates: start: 20050420, end: 20050427
  7. PEG-INTRON [Suspect]
     Indication: HEPATITIS C
     Dosage: 120-150MCG*QWK
     Dates: start: 20050427, end: 20050504
  8. PEG-INTRON [Suspect]
     Indication: HEPATITIS C
     Dosage: 120-150MCG*QWK
     Dates: start: 20050504, end: 20050528
  9. PEG-INTRON [Suspect]
  10. RIBAVIRIN [Suspect]
     Indication: HEPATITIS C
     Dosage: 800 MG QD ORAL
     Route: 048
     Dates: start: 20040321, end: 20050528
  11. RIBAVIRIN [Suspect]
  12. TUBERCULIN PPD INJECTABLE [Suspect]
     Indication: TUBERCULIN TEST
     Dates: start: 20050415
  13. TUBERCULIN PPD INJECTABLE [Suspect]
  14. LIBRAX [Concomitant]

REACTIONS (26)
  - ANAEMIA [None]
  - ARTHROPOD BITE [None]
  - BURNING SENSATION [None]
  - CATARACT [None]
  - CELLULITIS [None]
  - CHEST PAIN [None]
  - EYE INFECTION [None]
  - EYE IRRITATION [None]
  - EYE SWELLING [None]
  - INAPPROPRIATE SCHEDULE OF DRUG ADMINISTRATION [None]
  - INJECTION SITE HAEMORRHAGE [None]
  - INJECTION SITE INFECTION [None]
  - INSOMNIA [None]
  - LIVER FUNCTION TEST ABNORMAL [None]
  - OTORRHOEA [None]
  - PHOTOPHOBIA [None]
  - RASH ERYTHEMATOUS [None]
  - RETINAL EXUDATES [None]
  - STAPHYLOCOCCAL INFECTION [None]
  - STAPHYLOCOCCAL SCALDED SKIN SYNDROME [None]
  - SUICIDAL IDEATION [None]
  - VISION BLURRED [None]
  - VISUAL ACUITY REDUCED [None]
  - VISUAL DISTURBANCE [None]
  - WEIGHT DECREASED [None]
  - WHITE BLOOD CELL COUNT DECREASED [None]
